FAERS Safety Report 22650303 (Version 1)
Quarter: 2023Q2

REPORT INFORMATION
  Report Type: Spontaneous
  Country: CN (occurrence: CN)
  Receive Date: 20230628
  Receipt Date: 20230628
  Transmission Date: 20230722
  Serious: Yes (Disabling, Other)
  Sender: FDA-Public Use
  Company Number: CN-Merck Healthcare KGaA-2023455359

PATIENT
  Age: 33 Year
  Sex: Male
  Weight: 41 kg

DRUGS (6)
  1. ERBITUX [Suspect]
     Active Substance: CETUXIMAB
     Indication: Colon cancer metastatic
     Dosage: 700 MG, UNKNOWN
     Route: 041
     Dates: start: 20230529, end: 20230529
  2. IRINOTECAN [Suspect]
     Active Substance: IRINOTECAN
     Indication: Colon cancer metastatic
     Dosage: 190 MG, DAILY
     Route: 041
     Dates: start: 20230529, end: 20230529
  3. RALTITREXED [Suspect]
     Active Substance: RALTITREXED
     Indication: Colon cancer metastatic
     Dosage: 4 MG, OTHER (ONCE IN 21 DAYS)
     Route: 041
     Dates: start: 20230529, end: 20230529
  4. SODIUM CHLORIDE [Concomitant]
     Active Substance: SODIUM CHLORIDE
     Indication: Medication dilution
     Dosage: 250 ML, DAILY
     Route: 041
     Dates: start: 20230529, end: 20230529
  5. SODIUM CHLORIDE [Concomitant]
     Active Substance: SODIUM CHLORIDE
     Dosage: 250 ML, DAILY
     Route: 041
     Dates: start: 20230529, end: 20230529
  6. SODIUM CHLORIDE [Concomitant]
     Active Substance: SODIUM CHLORIDE
     Dosage: 250 ML, DAILY
     Route: 041
     Dates: start: 20230529, end: 20230529

REACTIONS (3)
  - Haemoglobin decreased [Recovering/Resolving]
  - White blood cell count decreased [Recovering/Resolving]
  - Granulocyte count decreased [Recovering/Resolving]

NARRATIVE: CASE EVENT DATE: 20230605
